FAERS Safety Report 6871803-9 (Version None)
Quarter: 2010Q3

REPORT INFORMATION
  Report Type: 
  Country: None (occurrence: None)
  Receive Date: 20100723
  Receipt Date: 20100716
  Transmission Date: 20110219
  Serious: Yes (Life-Threatening)
  Sender: FDA-Public Use
  Company Number: B0660278A

PATIENT
  Sex: Male
  Weight: 15 kg

DRUGS (10)
  1. MODACIN [Suspect]
     Indication: PNEUMONIA
     Dosage: 1500MG PER DAY
     Route: 042
     Dates: start: 20100515, end: 20100515
  2. BACCIDAL [Concomitant]
  3. GASTER [Concomitant]
  4. RIVOTRIL [Concomitant]
     Route: 048
  5. EXCEGRAN [Concomitant]
     Route: 048
  6. ONON [Concomitant]
     Route: 048
  7. PHENOBARBITAL TAB [Concomitant]
  8. LEVOCARNITINE [Concomitant]
     Route: 048
  9. HOKUNALIN [Concomitant]
     Route: 062
  10. PULMICORT [Concomitant]
     Route: 055

REACTIONS (4)
  - ANAPHYLACTIC SHOCK [None]
  - CYANOSIS [None]
  - ERYTHEMA [None]
  - WHEEZING [None]
